FAERS Safety Report 6005533-2 (Version None)
Quarter: 2008Q4

REPORT INFORMATION
  Report Type: 
  Country: None (occurrence: None)
  Receive Date: 20081216
  Receipt Date: 20081216
  Transmission Date: 20090506
  Serious: Yes (Other)
  Sender: FDA-Public Use
  Company Number: None

PATIENT
  Sex: Male
  Weight: 60.3284 kg

DRUGS (1)
  1. PROMETHAZINE [Suspect]
     Indication: DIARRHOEA
     Dosage: 1 TABLET 1 PER 6 HRS PO
     Route: 048
     Dates: start: 20081214, end: 20081214

REACTIONS (2)
  - ABDOMINAL PAIN UPPER [None]
  - DRUG HYPERSENSITIVITY [None]
